FAERS Safety Report 7554136-7 (Version None)
Quarter: 2011Q2

REPORT INFORMATION
  Report Type: 
  Country: None (occurrence: None)
  Receive Date: 20110617
  Receipt Date: 20110603
  Transmission Date: 20111010
  Serious: Yes (Hospitalization)
  Sender: FDA-Public Use
  Company Number: US-JNJFOC-20110602132

PATIENT
  Sex: Female
  Weight: 45 kg

DRUGS (8)
  1. INFLIXIMAB, RECOMBINANT [Suspect]
     Route: 042
     Dates: start: 20100831
  2. MESALAMINE [Concomitant]
  3. PREDNISONE [Concomitant]
  4. INFLIXIMAB, RECOMBINANT [Suspect]
     Indication: INFLAMMATORY BOWEL DISEASE
     Route: 042
     Dates: start: 20080923
  5. INFLIXIMAB, RECOMBINANT [Suspect]
     Route: 042
     Dates: start: 20100831
  6. HUMIRA [Concomitant]
  7. METHOTREXATE [Concomitant]
  8. INFLIXIMAB, RECOMBINANT [Suspect]
     Indication: CROHN'S DISEASE
     Route: 042
     Dates: start: 20080923

REACTIONS (2)
  - CROHN'S DISEASE [None]
  - GASTROENTERITIS VIRAL [None]
